FAERS Safety Report 6867693-0 (Version None)
Quarter: 2010Q3

REPORT INFORMATION
  Report Type: 
  Country: None (occurrence: None)
  Receive Date: 20100722
  Receipt Date: 20100507
  Transmission Date: 20110219
  Serious: No
  Sender: FDA-Public Use
  Company Number: US-BAUSCH-2010BL002470

PATIENT
  Age: 72 Year
  Sex: Male

DRUGS (2)
  1. OPCON-A [Suspect]
     Indication: EYE PRURITUS
     Route: 047
     Dates: start: 20100504, end: 20100504
  2. OPCON-A [Suspect]
     Indication: SEASONAL ALLERGY
     Route: 047
     Dates: start: 20100504, end: 20100504

REACTIONS (1)
  - INSTILLATION SITE PAIN [None]
